FAERS Safety Report 5424375-X (Version None)
Quarter: 2007Q3

REPORT INFORMATION
  Report Type: 
  Country: None (occurrence: None)
  Receive Date: 20070822
  Receipt Date: 20070807
  Transmission Date: 20080115
  Serious: Yes (Hospitalization)
  Sender: FDA-Public Use
  Company Number: B0483530A

PATIENT
  Age: 34 Year
  Sex: Male

DRUGS (3)
  1. LAMIVUDINE [Suspect]
     Indication: HIV INFECTION
  2. STAVUDINE [Suspect]
     Indication: HIV INFECTION
  3. NEVIRAPINE [Suspect]
     Indication: HIV INFECTION

REACTIONS (23)
  - ANAEMIA MACROCYTIC [None]
  - ASTHENIA [None]
  - BLOOD ALBUMIN DECREASED [None]
  - BLOOD ALKALINE PHOSPHATASE INCREASED [None]
  - BONE MARROW FAILURE [None]
  - CAROTID BRUIT [None]
  - CSF PROTEIN INCREASED [None]
  - CYTOMEGALOVIRUS INFECTION [None]
  - DYSPNOEA EXERTIONAL [None]
  - GAIT DISTURBANCE [None]
  - IMMUNE RECONSTITUTION SYNDROME [None]
  - LEUKOPENIA [None]
  - MULTI-ORGAN DISORDER [None]
  - MUSCLE ATROPHY [None]
  - MUSCULAR WEAKNESS [None]
  - MYELODYSPLASTIC SYNDROME [None]
  - OEDEMA PERIPHERAL [None]
  - PALLOR [None]
  - PITTING OEDEMA [None]
  - PLEOCYTOSIS [None]
  - POLYNEUROPATHY [None]
  - RADICULOPATHY [None]
  - REFLEXES ABNORMAL [None]
